FAERS Safety Report 18905512 (Version 2)
Quarter: 2021Q2

REPORT INFORMATION
  Report Type: Spontaneous
  Country: US (occurrence: US)
  Receive Date: 20210217
  Receipt Date: 20210518
  Transmission Date: 20210717
  Serious: No
  Sender: FDA-Public Use
  Company Number: US-SUNOVION-2020SUN003952

PATIENT
  Age: 73 Year
  Sex: Female

DRUGS (5)
  1. KYNMOBI [Suspect]
     Active Substance: APOMORPHINE HYDROCHLORIDE
     Dosage: 10 MG
     Route: 060
     Dates: start: 202011
  2. CARBIDOPA/LEVODOPA [Concomitant]
     Active Substance: CARBIDOPA\LEVODOPA
     Dosage: UNK
  3. KYNMOBI [Suspect]
     Active Substance: APOMORPHINE HYDROCHLORIDE
     Dosage: UNK, BID
     Route: 060
  4. KYNMOBI [Suspect]
     Active Substance: APOMORPHINE HYDROCHLORIDE
     Dosage: UNK, BID
     Route: 060
  5. PRAMIPEXOLE. [Concomitant]
     Active Substance: PRAMIPEXOLE
     Dosage: UNK

REACTIONS (13)
  - Therapeutic product effect decreased [Unknown]
  - Therapeutic product effect delayed [Unknown]
  - Swollen tongue [Unknown]
  - Feeling abnormal [Unknown]
  - Confusional state [Unknown]
  - Oral discomfort [Unknown]
  - Dysgeusia [Unknown]
  - Salivary hypersecretion [Unknown]
  - Fear [Unknown]
  - Tongue discomfort [Unknown]
  - Lip swelling [Unknown]
  - Amnesia [Unknown]
  - Dry mouth [Unknown]
